FAERS Safety Report 7594970-0 (Version None)
Quarter: 2011Q3

REPORT INFORMATION
  Report Type: 
  Country: None (occurrence: None)
  Receive Date: 20110707
  Receipt Date: 20110630
  Transmission Date: 20111222
  Serious: Yes (Other)
  Sender: FDA-Public Use
  Company Number: SV-ABBOTT-11P-050-0835821-00

PATIENT
  Age: 50 Year
  Sex: Female

DRUGS (1)
  1. NIASPAN [Suspect]
     Indication: PRODUCT USED FOR UNKNOWN INDICATION
     Route: 048
     Dates: start: 20100713, end: 20100714

REACTIONS (6)
  - SWELLING FACE [None]
  - LOSS OF CONSCIOUSNESS [None]
  - HEADACHE [None]
  - HYPOAESTHESIA [None]
  - CONVULSION [None]
  - DYSPNOEA [None]
